FAERS Safety Report 5621575-0 (Version None)
Quarter: 2008Q1

REPORT INFORMATION
  Report Type: 
  Country: None (occurrence: None)
  Receive Date: 20080206
  Receipt Date: 20080118
  Transmission Date: 20080703
  Serious: Yes (Hospitalization)
  Sender: FDA-Public Use
  Company Number: CIO08000322

PATIENT
  Age: 11 Year
  Sex: Male
  Weight: 44 kg

DRUGS (1)
  1. NYQUIL  CHILDREN'S COLD/COUGH RELIEF, CHERRY FLAVOR(CHLORPHENAMINE MAL [Suspect]
     Indication: VIRAL INFECTION
     Dosage: 30 ML, 1 ONLY FOR 1 DAY, ORAL
     Route: 048

REACTIONS (11)
  - CRYING [None]
  - DELIRIUM [None]
  - DYSPNOEA [None]
  - FATIGUE [None]
  - HALLUCINATION [None]
  - HEADACHE [None]
  - HYPERVENTILATION [None]
  - HYPOAESTHESIA [None]
  - PARAESTHESIA [None]
  - PYREXIA [None]
  - SCREAMING [None]
